FAERS Safety Report 24121603 (Version 1)
Quarter: 2024Q3

REPORT INFORMATION
  Report Type: Spontaneous
  Country: FR (occurrence: FR)
  Receive Date: 20240722
  Receipt Date: 20240722
  Transmission Date: 20241016
  Serious: Yes (Other)
  Sender: BAUSCH AND LOMB
  Company Number: FR-CHEPLA-2024009051

PATIENT
  Age: 72 Year
  Sex: Female
  Weight: 53 kg

DRUGS (5)
  1. HYDROCORTISONE BUTYRATE [Suspect]
     Active Substance: HYDROCORTISONE BUTYRATE
     Indication: Pruritus
     Dosage: THREE NIGHTS IN A ROW
     Route: 065
     Dates: start: 202404
  2. HYDROCORTISONE BUTYRATE [Suspect]
     Active Substance: HYDROCORTISONE BUTYRATE
     Dosage: LOTION, MIDNIGHT ON THE NIGHT
     Route: 065
     Dates: start: 20240707, end: 20240708
  3. HYDROCORTISONE BUTYRATE [Suspect]
     Active Substance: HYDROCORTISONE BUTYRATE
     Dosage: LOTION
     Route: 065
     Dates: start: 20240711, end: 20240712
  4. VITAMIN D [Concomitant]
     Active Substance: VITAMIN D NOS
     Indication: Alopecia
     Route: 065
  5. BROMAZEPAM [Concomitant]
     Active Substance: BROMAZEPAM
     Indication: Product used for unknown indication
     Dosage: 4 TABLETS
     Route: 065

REACTIONS (2)
  - Paralysis [Unknown]
  - Hypotension [Unknown]
